FAERS Safety Report 7825338-7 (Version None)
Quarter: 2011Q4

REPORT INFORMATION
  Report Type: 
  Country: None (occurrence: None)
  Receive Date: 20111019
  Receipt Date: 20111010
  Transmission Date: 20120403
  Serious: Yes (Other)
  Sender: FDA-Public Use
  Company Number: PHHY2011GB63751

PATIENT
  Age: 61 Year
  Sex: Female

DRUGS (14)
  1. SIMVASTATIN [Concomitant]
     Dosage: 40 MG, UNK
     Dates: start: 20100913
  2. RAMIPRIL [Suspect]
     Indication: BLOOD PRESSURE
  3. DILTIAZEM HCL [Suspect]
     Dosage: 200 MG, QD
     Route: 048
     Dates: start: 20101006
  4. DILTIAZEM HCL [Suspect]
     Route: 048
     Dates: start: 20101006, end: 20101104
  5. ASPIRIN [Concomitant]
     Dosage: 75 MG, QD
     Dates: start: 20101202
  6. BENDROFLUMETHIAZIDE [Concomitant]
     Dosage: UNK UKN, UNK
     Dates: start: 20110113
  7. DANDELION [Concomitant]
     Dosage: UNK UKN, UNK
  8. DILTIAZEM HCL [Suspect]
     Dosage: 200 MG, QD
     Route: 048
     Dates: end: 20101104
  9. HERBAL EXTRACTS NOS [Concomitant]
     Indication: MIGRAINE
     Dosage: UNK UKN, UNK
  10. MEBEVERINE [Concomitant]
  11. SOTALOL HCL [Concomitant]
  12. LOSARTAN POTASSIUM [Concomitant]
     Dosage: UNK UKN, UNK
  13. BISOPROLOL [Suspect]
     Dosage: UNK UKN, UNK
     Dates: start: 20101001, end: 20101006
  14. INDAPAMIDE [Concomitant]
     Dosage: 1.5 MG, UNK
     Dates: start: 20101001

REACTIONS (9)
  - MIGRAINE WITH AURA [None]
  - DRUG HYPERSENSITIVITY [None]
  - HYPOAESTHESIA [None]
  - VISION BLURRED [None]
  - NAUSEA [None]
  - VISUAL IMPAIRMENT [None]
  - BLOOD PRESSURE INCREASED [None]
  - DIZZINESS [None]
  - VERTIGO [None]
